FAERS Safety Report 10866609 (Version 1)
Quarter: 2015Q1

REPORT INFORMATION
  Report Type: Not Available
  Country: US (occurrence: US)
  Receive Date: 20150225
  Receipt Date: 20150225
  Transmission Date: 20150721
  Serious: No
  Sender: FDA-Public Use
  Company Number: US-LUPIN PHARMACEUTICALS INC.-E2B_00001922

PATIENT
  Age: 7 Year
  Sex: Female
  Weight: 22.7 kg

DRUGS (1)
  1. SUPRAX [Suspect]
     Active Substance: CEFIXIME
     Indication: SINUSITIS
     Dates: start: 20140320, end: 20140323

REACTIONS (1)
  - Tongue discolouration [Unknown]

NARRATIVE: CASE EVENT DATE: 20140322
